FAERS Safety Report 7921506-4 (Version None)
Quarter: 2011Q4

REPORT INFORMATION
  Report Type: 
  Country: None (occurrence: None)
  Receive Date: 20111117
  Receipt Date: 20111108
  Transmission Date: 20120403
  Serious: Yes (Hospitalization)
  Sender: FDA-Public Use
  Company Number: US-ABBOTT-11P-163-0872775-00

PATIENT
  Sex: Female
  Weight: 134.84 kg

DRUGS (12)
  1. UNNAMED STOOL SOFTENER [Concomitant]
     Indication: PRODUCT USED FOR UNKNOWN INDICATION
  2. LISINOPRIL [Concomitant]
     Indication: HYPERTENSION
  3. HUMIRA [Suspect]
     Indication: PSORIATIC ARTHROPATHY
  4. DITROPAN [Concomitant]
     Indication: HYPERTONIC BLADDER
  5. MOBIC [Concomitant]
     Indication: PSORIATIC ARTHROPATHY
  6. ASPIRIN [Concomitant]
     Indication: PROPHYLAXIS
  7. ASPIRIN [Concomitant]
     Indication: CARDIAC DISORDER
  8. LEVOTHYROXINE SODIUM [Concomitant]
     Indication: HYPOTHYROIDISM
  9. PRILOSEC [Concomitant]
     Indication: GASTROOESOPHAGEAL REFLUX DISEASE
  10. HUMIRA [Suspect]
     Indication: PSORIASIS
     Dates: start: 20090101, end: 20100101
  11. PROZAC [Concomitant]
     Indication: DEPRESSION
  12. SIMVASTATIN [Concomitant]
     Indication: BLOOD CHOLESTEROL INCREASED

REACTIONS (12)
  - DEVICE DISLOCATION [None]
  - DYSPNOEA [None]
  - PULMONARY HYPERTENSION [None]
  - INFLUENZA [None]
  - BLOOD URINE PRESENT [None]
  - ARTHROPOD BITE [None]
  - SINUSITIS [None]
  - PSORIASIS [None]
  - CHRONIC OBSTRUCTIVE PULMONARY DISEASE [None]
  - PNEUMONIA [None]
  - VAGINAL INFECTION [None]
  - BACTERIAL TEST [None]
